FAERS Safety Report 9676121 (Version 1)
Quarter: 2013Q4

REPORT INFORMATION
  Report Type: Spontaneous
  Country: NZ (occurrence: NZ)
  Receive Date: 20131107
  Receipt Date: 20131107
  Transmission Date: 20140711
  Serious: Yes (Hospitalization)
  Sender: FDA-Public Use
  Company Number: PHHY2013NZ124041

PATIENT
  Age: 51 Year
  Sex: Female

DRUGS (3)
  1. QUETIAPINE [Suspect]
     Dosage: 5800 MG, UNK
  2. CITALOPRAM [Suspect]
     Dosage: 240 MG, UNK
  3. ALCOHOL [Suspect]

REACTIONS (12)
  - Pneumonia aspiration [Recovered/Resolved]
  - Ventricular extrasystoles [Recovered/Resolved]
  - Fall [Recovered/Resolved]
  - Epistaxis [Recovered/Resolved]
  - Hypotension [Recovered/Resolved]
  - Hypothermia [Recovered/Resolved]
  - Unresponsive to stimuli [Recovered/Resolved]
  - Electrocardiogram abnormal [Recovered/Resolved]
  - Electrocardiogram QRS complex prolonged [Recovered/Resolved]
  - Electrocardiogram QT prolonged [Recovered/Resolved]
  - Suicide attempt [Unknown]
  - Intentional overdose [Recovered/Resolved]
